FAERS Safety Report 5843329-2 (Version None)
Quarter: 2008Q3

REPORT INFORMATION
  Report Type: 
  Country: None (occurrence: None)
  Receive Date: 20080808
  Receipt Date: 20080725
  Transmission Date: 20090109
  Serious: Yes (Other)
  Sender: FDA-Public Use
  Company Number: DSA_32204-2008

PATIENT
  Age: 56 Year
  Sex: Male

DRUGS (6)
  1. CARDIZEM [Suspect]
     Indication: HYPERTENSION
     Dosage: 90 MG QD ORAL
     Route: 048
     Dates: start: 20070101, end: 20080701
  2. ATENOLOL [Concomitant]
  3. VALSARTAN [Concomitant]
  4. DIAZEPAM [Concomitant]
  5. DIURETICS [Concomitant]
  6. NON SPECIFIED DRUG FOR TREATMENT OF URIC ACID INCREASE [Concomitant]

REACTIONS (1)
  - HYPERTENSION [None]
